FAERS Safety Report 4359766-1 (Version None)
Quarter: 2004Q2

REPORT INFORMATION
  Report Type: 
  Country: None (occurrence: None)
  Receive Date: 20040518
  Receipt Date: 20040327
  Transmission Date: 20050107
  Serious: Yes (Death)
  Sender: FDA-Public Use
  Company Number: PHHO2004CO04635

PATIENT
  Age: 81 Year
  Sex: Male

DRUGS (1)
  1. ZOLEDRONAT [Suspect]
     Indication: METASTASES TO BONE
     Dosage: 4 MG
     Route: 042
     Dates: start: 20030501

REACTIONS (2)
  - DISEASE PROGRESSION [None]
  - RENAL DISORDER [None]
